FAERS Safety Report 4759270-2 (Version None)
Quarter: 2005Q3

REPORT INFORMATION
  Report Type: 
  Country: None (occurrence: None)
  Receive Date: 20050826
  Receipt Date: 20040728
  Transmission Date: 20060218
  Serious: Yes (Other)
  Sender: FDA-Public Use
  Company Number: 238365

PATIENT
  Age: 72 Year
  Sex: Female

DRUGS (2)
  1. VAGIFEM [Suspect]
     Indication: ILL-DEFINED DISORDER
     Dosage: 1 TAB QD X 2 WKS, THEN 1 TAB BIW, VAGINAL
     Route: 067
     Dates: start: 20040402, end: 20040401
  2. CALTRATE (CALCIUM CARBONATE) [Concomitant]

REACTIONS (1)
  - HYPERSENSITIVITY [None]
